FAERS Safety Report 9454549 (Version 1)
Quarter: 2013Q3

REPORT INFORMATION
  Report Type: Spontaneous
  Country: US (occurrence: None)
  Receive Date: 20130808
  Receipt Date: 20130808
  Transmission Date: 20140515
  Serious: Yes (Other)
  Sender: FDA-Public Use
  Company Number: 2013SA077735

PATIENT
  Age: 55 Year
  Sex: Female

DRUGS (2)
  1. GOLD BOND POWDER SPRAY CLASSIC [Suspect]
     Indication: DRY SKIN
     Dates: start: 20130730
  2. GOLD BOND FRICTION DEFENSE [Suspect]
     Indication: DRY SKIN

REACTIONS (2)
  - Thermal burn [None]
  - Sticky skin [None]
